FAERS Safety Report 4965499-0 (Version None)
Quarter: 2006Q2

REPORT INFORMATION
  Report Type: 
  Country: None (occurrence: None)
  Receive Date: 20060406
  Receipt Date: 20030605
  Transmission Date: 20061013
  Serious: Yes (Hospitalization)
  Sender: FDA-Public Use
  Company Number: US-MERCK-0306USA00870

PATIENT
  Age: 35 Year
  Sex: Female
  Weight: 98 kg

DRUGS (1)
  1. VIOXX [Suspect]
     Indication: BACK PAIN
     Route: 048
     Dates: start: 20000401, end: 20010801

REACTIONS (5)
  - CARDIOVASCULAR DISORDER [None]
  - DEPRESSION [None]
  - EYE DISORDER [None]
  - MITRAL VALVE PROLAPSE [None]
  - POLYTRAUMATISM [None]
